FAERS Safety Report 21387017 (Version 1)
Quarter: 2022Q3

REPORT INFORMATION
  Report Type: Spontaneous
  Country: US (occurrence: None)
  Receive Date: 20220928
  Receipt Date: 20220928
  Transmission Date: 20221027
  Serious: Yes (Other)
  Sender: FDA-Public Use
  Company Number: 2022A319881

PATIENT
  Age: 20768 Day
  Sex: Female
  Weight: 59 kg

DRUGS (15)
  1. TEZSPIRE [Suspect]
     Active Substance: TEZEPELUMAB-EKKO
     Indication: Asthma
     Dosage: 210MG/1.91ML
     Route: 058
     Dates: start: 20220616
  2. TEZSPIRE [Suspect]
     Active Substance: TEZEPELUMAB-EKKO
     Indication: Asthma
     Dosage: 210MG/1.91ML
     Route: 058
     Dates: start: 20220616
  3. TEZSPIRE [Suspect]
     Active Substance: TEZEPELUMAB-EKKO
     Indication: Asthma
     Dosage: 210 MG
     Route: 058
     Dates: start: 20220721
  4. TEZSPIRE [Suspect]
     Active Substance: TEZEPELUMAB-EKKO
     Indication: Asthma
     Dosage: 210 MG
     Route: 058
     Dates: start: 20220721
  5. TEZSPIRE [Suspect]
     Active Substance: TEZEPELUMAB-EKKO
     Indication: Asthma
     Dosage: 210.0MG UNKNOWN
     Route: 058
     Dates: start: 20220818
  6. TEZSPIRE [Suspect]
     Active Substance: TEZEPELUMAB-EKKO
     Indication: Asthma
     Dosage: 210.0MG UNKNOWN
     Route: 058
     Dates: start: 20220818
  7. ALBUTEROL [Concomitant]
     Active Substance: ALBUTEROL
     Dosage: USED AS NEEDED
  8. ADVAIR HFA [Concomitant]
     Active Substance: FLUTICASONE PROPIONATE\SALMETEROL XINAFOATE
     Dosage: TWO TIMES A DAY
  9. DUONEB [Concomitant]
     Active Substance: ALBUTEROL SULFATE\IPRATROPIUM BROMIDE
     Dosage: USED AS NEEDED
  10. LIPITOR [Concomitant]
     Active Substance: ATORVASTATIN CALCIUM
     Dosage: DAILY
  11. LISINOPRIL [Concomitant]
     Active Substance: LISINOPRIL
     Dosage: DAILY
  12. FENTANYL [Concomitant]
     Active Substance: FENTANYL
  13. CYMBALTA [Concomitant]
     Active Substance: DULOXETINE HYDROCHLORIDE
     Dosage: AS NEEDED
  14. LOZAZEPAM [Concomitant]
  15. OXYCODONE [Concomitant]
     Active Substance: OXYCODONE

REACTIONS (7)
  - Rash vesicular [Unknown]
  - Vomiting [Unknown]
  - Diarrhoea [Unknown]
  - Back pain [Unknown]
  - Pyrexia [Unknown]
  - Hepatic vascular thrombosis [Unknown]
  - Rash pruritic [Unknown]

NARRATIVE: CASE EVENT DATE: 20220906
